FAERS Safety Report 22253323 (Version 1)
Quarter: 2023Q2

REPORT INFORMATION
  Report Type: Spontaneous
  Country: GB (occurrence: None)
  Receive Date: 20230426
  Receipt Date: 20230426
  Transmission Date: 20230721
  Serious: Yes (Other)
  Sender: FDA-Public Use
  Company Number: GB-MHRA-MED-202304150829104390-GQDVS

PATIENT
  Age: 53 Year
  Sex: Male

DRUGS (2)
  1. METFORMIN [Suspect]
     Active Substance: METFORMIN HYDROCHLORIDE
     Indication: Diabetes mellitus
     Dosage: 500MG BD; ;
     Dates: start: 20230401
  2. ATORVASTATIN [Concomitant]
     Active Substance: ATORVASTATIN
     Indication: Hypercholesterolaemia

REACTIONS (2)
  - Nail avulsion [Not Recovered/Not Resolved]
  - Foot deformity [Not Recovered/Not Resolved]

NARRATIVE: CASE EVENT DATE: 20230401
